FAERS Safety Report 7044814-0 (Version None)
Quarter: 2010Q4

REPORT INFORMATION
  Report Type: 
  Country: None (occurrence: None)
  Receive Date: 20101014
  Receipt Date: 20100930
  Transmission Date: 20110411
  Serious: Yes (Other)
  Sender: FDA-Public Use
  Company Number: PHHY2010BR65328

PATIENT
  Sex: Male

DRUGS (3)
  1. DIOVAN [Suspect]
     Indication: HYPERTENSION
     Dosage: ONE TABLET (80 MG) A DAY.
     Route: 048
  2. VIGADEXA [Concomitant]
     Dosage: 1 DF, Q4H
  3. MAXIDEX [Concomitant]
     Dosage: 1 DF, Q4H

REACTIONS (2)
  - BLOOD PRESSURE INCREASED [None]
  - CATARACT OPERATION [None]
